FAERS Safety Report 12459036 (Version 1)
Quarter: 2016Q2

REPORT INFORMATION
  Report Type: Spontaneous
  Country: FR (occurrence: FR)
  Receive Date: 20160613
  Receipt Date: 20160613
  Transmission Date: 20160815
  Serious: Yes (Other)
  Sender: FDA-Public Use
  Company Number: FR-ALVOGEN-2015-ALVOGEN-014525

PATIENT
  Age: 70 Year
  Sex: Female
  Weight: 55 kg

DRUGS (8)
  1. MOPRAL [Suspect]
     Active Substance: OMEPRAZOLE SODIUM
     Indication: HIATUS HERNIA
     Route: 048
  2. OMEPRAZOLE. [Concomitant]
     Active Substance: OMEPRAZOLE
     Indication: PRODUCT USED FOR UNKNOWN INDICATION
  3. TENORETIC [Suspect]
     Active Substance: ATENOLOL\CHLORTHALIDONE
     Indication: HYPERTENSION
     Dates: start: 20150309
  4. DEBRIDAT [Suspect]
     Active Substance: TRIMEBUTINE MALEATE
     Indication: PRODUCT USED FOR UNKNOWN INDICATION
     Route: 048
  5. SEROPLEX [Concomitant]
     Active Substance: ESCITALOPRAM OXALATE
     Indication: EMOTIONAL DISORDER
  6. PANTOPRAZOLE [Concomitant]
     Active Substance: PANTOPRAZOLE SODIUM
     Indication: PRODUCT USED FOR UNKNOWN INDICATION
  7. KENZEN [Concomitant]
     Active Substance: CANDESARTAN
     Indication: HYPERTENSION
  8. LYSANXIA [Concomitant]
     Active Substance: PRAZEPAM
     Indication: EMOTIONAL DISORDER

REACTIONS (14)
  - Vomiting [Not Recovered/Not Resolved]
  - Depression [Not Recovered/Not Resolved]
  - Tremor [Not Recovered/Not Resolved]
  - Blood pressure fluctuation [Not Recovered/Not Resolved]
  - Headache [Not Recovered/Not Resolved]
  - Dizziness [Not Recovered/Not Resolved]
  - Product use issue [Unknown]
  - Weight decreased [Not Recovered/Not Resolved]
  - Nausea [Not Recovered/Not Resolved]
  - Heart rate increased [Not Recovered/Not Resolved]
  - Insomnia [Unknown]
  - Decreased appetite [Not Recovered/Not Resolved]
  - Hypotension [Not Recovered/Not Resolved]
  - Hot flush [Not Recovered/Not Resolved]

NARRATIVE: CASE EVENT DATE: 2015
